FAERS Safety Report 9191595 (Version 8)
Quarter: 2013Q4

REPORT INFORMATION
  Report Type: Report from Study
  Country: US (occurrence: US)
  Receive Date: 20130326
  Receipt Date: 20131127
  Transmission Date: 20140711
  Serious: Yes (Hospitalization, Other)
  Sender: FDA-Public Use
  Company Number: US-ACTELION-A-US2013-80922

PATIENT
  Age: 23 Year
  Sex: Male

DRUGS (6)
  1. TRACLEER [Suspect]
     Indication: PULMONARY ARTERIAL HYPERTENSION
     Dosage: 125 MG, BID
     Route: 048
     Dates: start: 20120321, end: 20130309
  2. TRACLEER [Suspect]
     Dosage: 37.5 MG, BID
     Route: 048
     Dates: start: 20120215, end: 20120320
  3. TRACLEER [Suspect]
     Dosage: UNK
     Route: 048
     Dates: start: 201304
  4. FLOLAN [Concomitant]
  5. COUMADIN [Concomitant]
  6. DIGOXIN [Concomitant]

REACTIONS (15)
  - Liver function test abnormal [Unknown]
  - Aspartate aminotransferase increased [Unknown]
  - Alanine aminotransferase increased [Unknown]
  - Hypersplenism [Not Recovered/Not Resolved]
  - Spleen operation [Not Recovered/Not Resolved]
  - Pancytopenia [Not Recovered/Not Resolved]
  - Platelet count decreased [Not Recovered/Not Resolved]
  - Anti-platelet antibody positive [Not Recovered/Not Resolved]
  - Upper respiratory tract infection [Recovered/Resolved]
  - Biopsy bone marrow normal [Not Recovered/Not Resolved]
  - Oxygen saturation decreased [Unknown]
  - Fatigue [Unknown]
  - Pulmonary arterial hypertension [Not Recovered/Not Resolved]
  - Cardiac failure [Not Recovered/Not Resolved]
  - Condition aggravated [Not Recovered/Not Resolved]
